FAERS Safety Report 4892268-2 (Version None)
Quarter: 2006Q1

REPORT INFORMATION
  Report Type: 
  Country: None (occurrence: None)
  Receive Date: 20060125
  Receipt Date: 20060125
  Transmission Date: 20060701
  Serious: Yes (Death)
  Sender: FDA-Public Use
  Company Number: None

PATIENT
  Age: 81 Year
  Sex: Male

DRUGS (1)
  1. HEPARIN [Suspect]
     Indication: ACUTE CORONARY SYNDROME
     Dates: start: 20051024, end: 20051026

REACTIONS (10)
  - ACTIVATED PARTIAL THROMBOPLASTIN TIME PROLONGED [None]
  - BRADYCARDIA [None]
  - COAGULOPATHY [None]
  - CORONARY ARTERY STENOSIS [None]
  - HYPOTENSION [None]
  - LOSS OF CONSCIOUSNESS [None]
  - NEUROLOGICAL EXAMINATION ABNORMAL [None]
  - POST PROCEDURAL COMPLICATION [None]
  - PUPIL FIXED [None]
  - SUBDURAL HAEMORRHAGE [None]
